FAERS Safety Report 5002088-6 (Version None)
Quarter: 2006Q2

REPORT INFORMATION
  Report Type: 
  Country: None (occurrence: None)
  Receive Date: 20060515
  Receipt Date: 20060504
  Transmission Date: 20061013
  Serious: Yes (Other)
  Sender: FDA-Public Use
  Company Number: US-ROCHE-446938

PATIENT
  Sex: Female

DRUGS (4)
  1. BONIVA [Suspect]
     Indication: OSTEOPOROSIS
     Dosage: FREQUENCY EVERY MONTH
     Route: 048
     Dates: start: 20051015
  2. CALCIUM GLUCONATE [Concomitant]
     Route: 048
  3. MAXALT [Concomitant]
     Indication: MIGRAINE
  4. SLEEPING PILL NOS [Concomitant]

REACTIONS (1)
  - RECTOCELE [None]
